FAERS Safety Report 25329666 (Version 5)
Quarter: 2025Q2

REPORT INFORMATION
  Report Type: Spontaneous
  Country: GB (occurrence: GB)
  Receive Date: 20250519
  Receipt Date: 20250619
  Transmission Date: 20250716
  Serious: Yes (Other)
  Sender: UCB
  Company Number: GB-UCBSA-2025028747

PATIENT
  Sex: Male

DRUGS (6)
  1. CIMZIA [Suspect]
     Active Substance: CERTOLIZUMAB PEGOL
     Indication: Rheumatoid arthritis
     Dosage: 200 MILLIGRAM, EV 2 WEEKS(QOW)
     Dates: start: 2016
  2. IBUPROFEN [Concomitant]
     Active Substance: IBUPROFEN
     Indication: Rheumatoid arthritis
     Dosage: UNK, 3X/WEEK
  3. IBUPROFEN [Concomitant]
     Active Substance: IBUPROFEN
     Dosage: UNK, 6X/DAY
  4. ACETAMINOPHEN [Concomitant]
     Active Substance: ACETAMINOPHEN
     Indication: Rheumatoid arthritis
     Dosage: UNK, 3X/WEEK
  5. ACETAMINOPHEN [Concomitant]
     Active Substance: ACETAMINOPHEN
     Dosage: UNK, 6X/DAY
  6. ZINC [Concomitant]
     Active Substance: ZINC
     Indication: Prophylaxis

REACTIONS (20)
  - Inflammatory bowel disease [Unknown]
  - Rheumatoid arthritis [Unknown]
  - Diabetes mellitus [Unknown]
  - Rash [Unknown]
  - Fatigue [Unknown]
  - Back pain [Unknown]
  - Depression [Unknown]
  - Psychiatric symptom [Unknown]
  - Anxiety [Unknown]
  - Mental disorder [Unknown]
  - Physical disability [Unknown]
  - Paranoia [Not Recovered/Not Resolved]
  - Infection [Unknown]
  - Migraine [Unknown]
  - Product quality issue [Unknown]
  - Inappropriate schedule of product administration [Unknown]
  - Insurance issue [Unknown]
  - Drug ineffective [Unknown]
  - Treatment noncompliance [Unknown]
  - Drug intolerance [Unknown]
